FAERS Safety Report 25750398 (Version 2)
Quarter: 2025Q3

REPORT INFORMATION
  Report Type: Spontaneous
  Country: JP (occurrence: JP)
  Receive Date: 20250902
  Receipt Date: 20250915
  Transmission Date: 20251020
  Serious: Yes (Hospitalization)
  Sender: PFIZER
  Company Number: JP-PFIZER INC-PV202500102830

PATIENT
  Age: 8 Decade
  Sex: Female

DRUGS (3)
  1. METHOTREXATE SODIUM [Interacting]
     Active Substance: METHOTREXATE SODIUM
     Indication: Rheumatoid arthritis
     Route: 048
  2. METHOTREXATE SODIUM [Interacting]
     Active Substance: METHOTREXATE SODIUM
     Indication: Sjogren^s syndrome
  3. TS-1 [Interacting]
     Active Substance: GIMERACIL\OTERACIL POTASSIUM\TEGAFUR
     Indication: Breast cancer female
     Route: 048

REACTIONS (4)
  - Potentiating drug interaction [Unknown]
  - Stomatitis [Unknown]
  - Mouth haemorrhage [Unknown]
  - Off label use [Unknown]
